FAERS Safety Report 20523144 (Version 1)
Quarter: 2022Q1

REPORT INFORMATION
  Report Type: Spontaneous
  Country: CA (occurrence: CA)
  Receive Date: 20220227
  Receipt Date: 20220227
  Transmission Date: 20220423
  Serious: Yes (Other)
  Sender: FDA-Public Use
  Company Number: None

PATIENT
  Age: 70 Year
  Sex: Female

DRUGS (2)
  1. METHOTREXATE [Suspect]
     Active Substance: METHOTREXATE
     Indication: Rheumatoid arthritis
     Dosage: 1 EVERY 1 WEEKS
     Route: 058
  2. TYLENOL [Concomitant]
     Active Substance: ACETAMINOPHEN
     Route: 065

REACTIONS (11)
  - Alopecia [Unknown]
  - Chills [Unknown]
  - Cholelithiasis [Unknown]
  - Dizziness [Unknown]
  - Eye irritation [Unknown]
  - Hypotension [Unknown]
  - Influenza like illness [Unknown]
  - Nausea [Unknown]
  - Oxygen saturation decreased [Unknown]
  - Product use issue [Unknown]
  - Pyrexia [Unknown]
